FAERS Safety Report 16061541 (Version 2)
Quarter: 2019Q2

REPORT INFORMATION
  Report Type: Spontaneous
  Country: US (occurrence: US)
  Receive Date: 20190312
  Receipt Date: 20190513
  Transmission Date: 20190711
  Serious: No
  Sender: FDA-Public Use
  Company Number: US-PFIZER INC-2019023738

PATIENT
  Age: 74 Year
  Sex: Male
  Weight: 77 kg

DRUGS (3)
  1. LYRICA [Suspect]
     Active Substance: PREGABALIN
     Dosage: 50 MG, 2X/DAY (1 CAP TWO TIMES DAILY)
     Route: 048
  2. LYRICA [Suspect]
     Active Substance: PREGABALIN
     Dosage: 50 MG, 1X/DAY
     Dates: start: 201902, end: 201902
  3. LYRICA [Suspect]
     Active Substance: PREGABALIN
     Indication: RESTLESS LEGS SYNDROME
     Dosage: 50 MG, 1X/DAY(1 CAP 1-2 HOURS BEFORE BEDTIMES)
     Route: 048

REACTIONS (6)
  - Product use in unapproved indication [Unknown]
  - Nausea [Unknown]
  - Dizziness [Unknown]
  - Off label use [Unknown]
  - Feeling abnormal [Unknown]
  - Confusional state [Unknown]
